FAERS Safety Report 21315494 (Version 1)
Quarter: 2022Q3

REPORT INFORMATION
  Report Type: Report from Study
  Country: CN (occurrence: CN)
  Receive Date: 20220909
  Receipt Date: 20220909
  Transmission Date: 20221027
  Serious: Yes (Life-Threatening)
  Sender: FDA-Public Use
  Company Number: CN-NOVARTISPH-NVSC2022CN037123

PATIENT
  Age: 88 Year
  Sex: Female
  Weight: 35 kg

DRUGS (2)
  1. ZYKADIA [Suspect]
     Active Substance: CERITINIB
     Indication: Lung adenocarcinoma
     Dosage: 450 MG, QD
     Route: 048
     Dates: start: 20200903
  2. ZYKADIA [Suspect]
     Active Substance: CERITINIB
     Dosage: 300 MG, QD
     Route: 048
     Dates: end: 202205

REACTIONS (2)
  - Cardiac disorder [Recovering/Resolving]
  - Pruritus [Not Recovered/Not Resolved]

NARRATIVE: CASE EVENT DATE: 20211201
